FAERS Safety Report 9448855 (Version 2)
Quarter: 2013Q3

REPORT INFORMATION
  Report Type: Spontaneous
  Country: US (occurrence: US)
  Receive Date: 20130808
  Receipt Date: 20130920
  Transmission Date: 20140515
  Serious: Yes (Hospitalization)
  Sender: FDA-Public Use
  Company Number: US-ELI_LILLY_AND_COMPANY-US201308001384

PATIENT
  Sex: Female

DRUGS (2)
  1. ADCIRCA [Suspect]
     Indication: PULMONARY ARTERIAL HYPERTENSION
     Dosage: 40 MG, QD
     Route: 048
     Dates: start: 20130512
  2. TREPROSTINIL [Concomitant]
     Route: 042

REACTIONS (2)
  - Cellulitis [Recovered/Resolved]
  - Dyspnoea [Recovered/Resolved]
